FAERS Safety Report 7150128-0 (Version None)
Quarter: 2010Q4

REPORT INFORMATION
  Report Type: 
  Country: None (occurrence: None)
  Receive Date: 20101210
  Receipt Date: 20101119
  Transmission Date: 20110411
  Serious: Yes (Hospitalization)
  Sender: FDA-Public Use
  Company Number: CN-SOLVAY-00210007261

PATIENT
  Age: 20299 Day
  Sex: Female

DRUGS (2)
  1. ACERTIL 4 MG [Suspect]
     Indication: HYPERTENSION
     Dosage: DAILY DOSE:  UNKNOWN
     Route: 065
     Dates: start: 20101021, end: 20101115
  2. BLINDED THERAPY (S05985 VS S09490) [Suspect]
     Indication: ESSENTIAL HYPERTENSION
     Dosage: DAILY DOSE: 4 MILLIGRAM(S)
     Route: 048
     Dates: end: 20100101

REACTIONS (4)
  - DIZZINESS [None]
  - LACUNAR INFARCTION [None]
  - NAUSEA [None]
  - PALPITATIONS [None]
